FAERS Safety Report 20420716 (Version 1)
Quarter: 2022Q1

REPORT INFORMATION
  Report Type: Spontaneous
  Country: US (occurrence: None)
  Receive Date: 20220202
  Receipt Date: 20220202
  Transmission Date: 20220423
  Serious: Yes (Other)
  Sender: FDA-Public Use
  Company Number: None

PATIENT
  Age: 21 Year
  Weight: 45 kg

DRUGS (3)
  1. REXULTI [Suspect]
     Active Substance: BREXPIPRAZOLE
     Indication: Emotional disorder
     Route: 048
  2. HERBALS\MITRAGYNINE [Suspect]
     Active Substance: HERBALS\MITRAGYNINE
     Indication: Emotional disorder
     Dosage: OTHER FREQUENCY : ABOUT 4-5/DAY;?
     Route: 048
  3. .DELTA-8/HEMP [Concomitant]

REACTIONS (6)
  - Heart rate increased [None]
  - Nausea [None]
  - Peripheral coldness [None]
  - Headache [None]
  - Syncope [None]
  - Drug interaction [None]

NARRATIVE: CASE EVENT DATE: 20220201
